FAERS Safety Report 5712928-0 (Version None)
Quarter: 2008Q2

REPORT INFORMATION
  Report Type: 
  Country: None (occurrence: None)
  Receive Date: 20080422
  Receipt Date: 20080414
  Transmission Date: 20081010
  Serious: Yes (Hospitalization)
  Sender: FDA-Public Use
  Company Number: IT-MERCK-0804ITA00021

PATIENT
  Age: 31 Year
  Sex: Male

DRUGS (3)
  1. CRIXIVAN [Suspect]
     Indication: ACUTE HIV INFECTION
     Route: 048
     Dates: start: 20050501
  2. STAVUDINE [Concomitant]
     Indication: ACUTE HIV INFECTION
     Route: 048
     Dates: start: 19950501
  3. LAMIVUDINE [Concomitant]
     Indication: ACUTE HIV INFECTION
     Route: 048
     Dates: start: 19950501

REACTIONS (3)
  - METABOLIC ACIDOSIS [None]
  - NEPHRITIS INTERSTITIAL [None]
  - RENAL IMPAIRMENT [None]
